FAERS Safety Report 21101599 (Version 3)
Quarter: 2022Q3

REPORT INFORMATION
  Report Type: Spontaneous
  Country: US (occurrence: US)
  Receive Date: 20220719
  Receipt Date: 20220905
  Transmission Date: 20221026
  Serious: Yes (Death, Other)
  Sender: FDA-Public Use
  Company Number: US-TEVA-2022-US-2056871

PATIENT
  Age: 73 Year
  Sex: Female
  Weight: 56 kg

DRUGS (14)
  1. AMLODIPINE\VALSARTAN [Suspect]
     Active Substance: AMLODIPINE\VALSARTAN
     Indication: Hypertension
     Dosage: DOSE: 10/320 MG
     Route: 065
     Dates: start: 20170119, end: 20170418
  2. AMLODIPINE\VALSARTAN [Suspect]
     Active Substance: AMLODIPINE\VALSARTAN
     Dosage: DOSE: 10/320 MG
     Route: 065
     Dates: start: 20170119, end: 20170418
  3. AMLODIPINE\VALSARTAN [Suspect]
     Active Substance: AMLODIPINE\VALSARTAN
     Dosage: DOSE: 10/320 MG
     Route: 065
     Dates: start: 20170119, end: 20170418
  4. HYDROCHLOROTHIAZIDE\VALSARTAN [Suspect]
     Active Substance: HYDROCHLOROTHIAZIDE\VALSARTAN
     Indication: Hypertension
     Dosage: DOSE: 320/25 MG
     Route: 048
     Dates: start: 20180306, end: 20190103
  5. HYDROCHLOROTHIAZIDE\VALSARTAN [Suspect]
     Active Substance: HYDROCHLOROTHIAZIDE\VALSARTAN
     Dosage: DOSE: 320/25 MG
     Route: 065
     Dates: start: 20180306, end: 20190103
  6. HYDROCHLOROTHIAZIDE\VALSARTAN [Suspect]
     Active Substance: HYDROCHLOROTHIAZIDE\VALSARTAN
     Dosage: DOSE: 320/25 MG
     Route: 065
     Dates: start: 20180306, end: 20190103
  7. HYDROCHLOROTHIAZIDE\VALSARTAN [Suspect]
     Active Substance: HYDROCHLOROTHIAZIDE\VALSARTAN
     Dosage: DOSE: 320/25 MG
     Route: 065
     Dates: start: 20180306, end: 20190103
  8. EXFORGE HCT [Suspect]
     Active Substance: AMLODIPINE BESYLATE\HYDROCHLOROTHIAZIDE\VALSARTAN
     Indication: Hypertension
     Dosage: 1 DOSAGE FORMS DAILY; DOSE: 320/10 MG DAILY, EXFORGE/HYDROCHLOROTHIAZIDE NOVARTIS
     Route: 065
     Dates: start: 2011, end: 20190118
  9. HYDROCHLOROTHIAZIDE\VALSARTAN [Suspect]
     Active Substance: HYDROCHLOROTHIAZIDE\VALSARTAN
     Indication: Hypertension
     Dosage: DOSE: 160/25 MG
     Route: 048
     Dates: start: 20190917, end: 20191114
  10. ACETAMINOPHEN [Concomitant]
     Active Substance: ACETAMINOPHEN
     Indication: Product used for unknown indication
     Route: 065
  11. VENLAFAXINE [Concomitant]
     Active Substance: VENLAFAXINE HYDROCHLORIDE
     Indication: Product used for unknown indication
     Dosage: DOSE: 37.5 MG
     Route: 065
  12. VALIUM [Concomitant]
     Active Substance: DIAZEPAM
     Indication: Anxiety
     Dosage: 5MG UNTIL 23-JUL-2020 (DEATH DATE)
     Route: 048
     Dates: start: 2012
  13. VALIUM [Concomitant]
     Active Substance: DIAZEPAM
     Dosage: 10 MG UNTIL 23-JUL-2020 (DEATH DATE)
     Route: 048
     Dates: start: 2016
  14. SERTRALINE [Concomitant]
     Active Substance: SERTRALINE HYDROCHLORIDE
     Indication: Depression
     Dosage: 50 MG UNTIL 23-JUL-2020 (DEATH DATE)
     Route: 065
     Dates: start: 2012

REACTIONS (2)
  - Death [Fatal]
  - Rectal cancer stage III [Unknown]
